FAERS Safety Report 15051723 (Version 2)
Quarter: 2018Q3

REPORT INFORMATION
  Report Type: Spontaneous
  Country: PL (occurrence: PL)
  Receive Date: 20180622
  Receipt Date: 20180703
  Transmission Date: 20181010
  Serious: Yes (Other)
  Sender: FDA-Public Use
  Company Number: PL-JNJFOC-20180618208

PATIENT
  Age: 40 Year
  Sex: Female

DRUGS (20)
  1. RISPERIDONE. [Suspect]
     Active Substance: RISPERIDONE
     Indication: SCHIZOPHRENIA
     Route: 048
     Dates: end: 201704
  2. SEDAM [Suspect]
     Active Substance: BROMAZEPAM
     Indication: INSOMNIA
     Route: 065
     Dates: end: 201704
  3. RISPOLEPT CONSTA [Suspect]
     Active Substance: RISPERIDONE
     Indication: SCHIZOPHRENIA
     Route: 030
     Dates: start: 201706
  4. QUETIAPINE. [Suspect]
     Active Substance: QUETIAPINE
     Indication: SCHIZOPHRENIA
     Dosage: START DATE: BETWEEN OCT AND DEC?2017
     Route: 065
     Dates: start: 2017
  5. QUETIAPINE. [Suspect]
     Active Substance: QUETIAPINE
     Indication: SCHIZOPHRENIA
     Dosage: 1?2 DOSES
     Route: 065
     Dates: start: 201706, end: 2017
  6. RISPERIDONE. [Suspect]
     Active Substance: RISPERIDONE
     Indication: SCHIZOPHRENIA
     Route: 048
     Dates: start: 201704, end: 201706
  7. RISPERIDONE. [Suspect]
     Active Substance: RISPERIDONE
     Indication: SCHIZOPHRENIA
     Dosage: FOR MIN. 3?4 WEEKS
     Route: 048
     Dates: start: 201706, end: 2017
  8. ARIPIPRAZOLE. [Suspect]
     Active Substance: ARIPIPRAZOLE
     Indication: SCHIZOPHRENIA
     Route: 065
     Dates: start: 201210
  9. VALPROIC ACID. [Suspect]
     Active Substance: VALPROIC ACID
     Indication: SCHIZOPHRENIA
     Dosage: 2 X 500 MG
     Route: 065
     Dates: start: 201210
  10. RISPERIDONE. [Suspect]
     Active Substance: RISPERIDONE
     Indication: SCHIZOPHRENIA
     Route: 048
     Dates: start: 201704, end: 201706
  11. SEDAM [Suspect]
     Active Substance: BROMAZEPAM
     Indication: INSOMNIA
     Route: 065
     Dates: start: 201704, end: 2017
  12. SEDAM [Suspect]
     Active Substance: BROMAZEPAM
     Indication: INSOMNIA
     Dosage: AT NIGHT, TEMPORARILY
     Route: 065
     Dates: start: 2017
  13. QUETIAPINE XR [Suspect]
     Active Substance: QUETIAPINE
     Indication: SCHIZOPHRENIA
     Dosage: 0?0?1; START DATE: BETWEEN OCT AND DEC?2017
     Route: 065
     Dates: start: 2017
  14. RISPERIDONE. [Suspect]
     Active Substance: RISPERIDONE
     Indication: SCHIZOPHRENIA
     Route: 048
     Dates: end: 201704
  15. RISPERIDONE. [Suspect]
     Active Substance: RISPERIDONE
     Indication: SCHIZOPHRENIA
     Dosage: FOR MIN. 3?4 WEEKS
     Route: 048
     Dates: start: 201706, end: 2017
  16. DIAZEPAM. [Suspect]
     Active Substance: DIAZEPAM
     Indication: SCHIZOPHRENIA
     Route: 065
     Dates: start: 201210
  17. QUETIAPINE XR [Suspect]
     Active Substance: QUETIAPINE
     Indication: SCHIZOPHRENIA
     Route: 065
     Dates: start: 201704, end: 2017
  18. AKINETON [Concomitant]
     Active Substance: BIPERIDEN HYDROCHLORIDE
     Route: 065
     Dates: start: 201210
  19. LACTULOSUM [Concomitant]
     Dosage: 2 GIFERS IN THE MORNING
     Route: 065
     Dates: start: 201210
  20. GUTRON [Concomitant]
     Active Substance: MIDODRINE
     Route: 065
     Dates: start: 201210

REACTIONS (6)
  - Suicidal ideation [Recovered/Resolved]
  - Persecutory delusion [Recovered/Resolved]
  - Treatment noncompliance [Unknown]
  - Anxiety [Recovered/Resolved]
  - Memory impairment [Recovered/Resolved]
  - Disturbance in attention [Recovered/Resolved]

NARRATIVE: CASE EVENT DATE: 2017
